FAERS Safety Report 20868832 (Version 1)
Quarter: 2022Q2

REPORT INFORMATION
  Report Type: Spontaneous
  Country: US (occurrence: US)
  Receive Date: 20220524
  Receipt Date: 20220524
  Transmission Date: 20220721
  Serious: No
  Sender: FDA-Public Use
  Company Number: US-PFIZER INC-202200649926

PATIENT
  Age: 80 Year
  Sex: Male
  Weight: 86.18 kg

DRUGS (2)
  1. ACCUPRIL [Suspect]
     Active Substance: QUINAPRIL HYDROCHLORIDE
     Indication: Cardiac disorder
     Dosage: 40 MG, 1X/DAY
  2. ACCUPRIL [Suspect]
     Active Substance: QUINAPRIL HYDROCHLORIDE
     Dosage: 20 MG

REACTIONS (3)
  - Wrong technique in product usage process [Not Recovered/Not Resolved]
  - Recalled product administered [Unknown]
  - Somnolence [Recovering/Resolving]

NARRATIVE: CASE EVENT DATE: 20210101
